FAERS Safety Report 4677453-7 (Version None)
Quarter: 2005Q2

REPORT INFORMATION
  Report Type: 
  Country: None (occurrence: None)
  Receive Date: 20050531
  Receipt Date: 20050520
  Transmission Date: 20051028
  Serious: Yes (Hospitalization)
  Sender: FDA-Public Use
  Company Number: PHBS2005JP07381

PATIENT
  Age: 75 Year
  Sex: Female

DRUGS (2)
  1. VOLTAREN [Suspect]
     Indication: PYREXIA
     Dosage: 25 MG/DAY
     Route: 054
     Dates: start: 20050428, end: 20050428
  2. AMINOFLUID [Concomitant]
     Dosage: 1500 ML/DAY
     Route: 042

REACTIONS (2)
  - HYPOGLYCAEMIA [None]
  - SHOCK HYPOGLYCAEMIC [None]
